FAERS Safety Report 5130382-7 (Version None)
Quarter: 2006Q4

REPORT INFORMATION
  Report Type: 
  Country: None (occurrence: None)
  Receive Date: 20061013
  Receipt Date: 20060927
  Transmission Date: 20070319
  Serious: Yes (Hospitalization)
  Sender: FDA-Public Use
  Company Number: US200608005239

PATIENT
  Age: 73 Year
  Sex: Male

DRUGS (4)
  1. ZYPREXA [Suspect]
     Indication: DEPRESSION
     Dosage: 5 MG
     Dates: start: 19990701, end: 20051001
  2. PROZAC (FLUXOETINE HYDROCHLORIDE) [Concomitant]
  3. RISPERIDONE [Concomitant]
  4. LOPRESSOR [Concomitant]

REACTIONS (6)
  - DIABETES MELLITUS [None]
  - FALL [None]
  - HYPERGLYCAEMIA [None]
  - INSULIN RESISTANCE [None]
  - LOSS OF CONSCIOUSNESS [None]
  - METABOLIC DISORDER [None]
